FAERS Safety Report 9801992 (Version 2)
Quarter: 2014Q1

REPORT INFORMATION
  Report Type: Report from Study
  Country: DE (occurrence: DE)
  Receive Date: 20140107
  Receipt Date: 20140107
  Transmission Date: 20141002
  Serious: Yes (Hospitalization)
  Sender: FDA-Public Use
  Company Number: DE-BRISTOL-MYERS SQUIBB COMPANY-15902372

PATIENT
  Age: 24 Year
  Sex: Male

DRUGS (1)
  1. IPILIMUMAB [Suspect]
     Indication: MALIGNANT MELANOMA
     Dosage: IPILIMUMAB 10MG/KG?NO OF COURSES: 4
     Route: 042
     Dates: start: 20110407

REACTIONS (1)
  - Lung infiltration [Recovered/Resolved]
